FAERS Safety Report 8932588 (Version 1)
Quarter: 2012Q4

REPORT INFORMATION
  Report Type: 
  Country: FR (occurrence: FR)
  Receive Date: 20121128
  Receipt Date: 20121128
  Transmission Date: 20130627
  Serious: Yes (Hospitalization)
  Sender: FDA-Public Use
  Company Number: FR-PFIZER INC-2012293415

PATIENT
  Age: 47 Year
  Sex: Female

DRUGS (2)
  1. SOLU-MEDROL [Suspect]
     Dosage: 2 ml, single
     Route: 042
     Dates: start: 20121015, end: 20121015
  2. VISIPAQUE [Suspect]
     Dosage: 140 ml, single
     Route: 042
     Dates: start: 20121015, end: 20121015

REACTIONS (3)
  - Cough [Recovered/Resolved]
  - Dysphonia [Recovered/Resolved]
  - Erythema [Recovered/Resolved]
